FAERS Safety Report 17727413 (Version 1)
Quarter: 2020Q2

REPORT INFORMATION
  Report Type: Spontaneous
  Country: US (occurrence: US)
  Receive Date: 20200429
  Receipt Date: 20200429
  Transmission Date: 20200714
  Serious: No
  Sender: FDA-Public Use
  Company Number: None

PATIENT
  Sex: Female

DRUGS (1)
  1. OXYBUTYNIN ER 5MG TABLETS [Suspect]
     Active Substance: OXYBUTYNIN
     Indication: INCONTINENCE
     Dates: start: 20200128, end: 20200313

REACTIONS (6)
  - Urinary assistance device user [None]
  - Bladder irritation [None]
  - Haemorrhage [None]
  - Complication associated with device [None]
  - Vision blurred [None]
  - Diplopia [None]
